FAERS Safety Report 9586991 (Version 2)
Quarter: 2013Q4

REPORT INFORMATION
  Report Type: Spontaneous
  Country: JP (occurrence: JP)
  Receive Date: 20131003
  Receipt Date: 20131003
  Transmission Date: 20140711
  Serious: Yes (Life-Threatening, Hospitalization, Other)
  Sender: FDA-Public Use
  Company Number: JP-TAKEDA-TCI2012A06090

PATIENT
  Age: 65 Year
  Sex: Male
  Weight: 68 kg

DRUGS (29)
  1. TAKEPRON OD [Suspect]
     Indication: GASTROOESOPHAGEAL REFLUX DISEASE
     Dosage: 30 MG, QD
     Route: 048
     Dates: start: 20101208, end: 20120408
  2. TAKEPRON OD [Suspect]
     Indication: GASTROOESOPHAGEAL REFLUX DISEASE
     Route: 048
     Dates: start: 20120409, end: 20121004
  3. TAKEPRON OD [Suspect]
     Indication: GASTRIC ULCER
  4. ARTIST [Concomitant]
     Indication: CARDIAC FAILURE CHRONIC
     Route: 048
     Dates: start: 20101215
  5. ARTIST [Concomitant]
     Indication: CARDIAC FAILURE CHRONIC
  6. BAYASPIRIN [Concomitant]
     Indication: ARTERIOSCLEROSIS CORONARY ARTERY
     Route: 048
     Dates: start: 20101206
  7. BAYASPIRIN [Concomitant]
     Indication: ARTERIOSCLEROSIS CORONARY ARTERY
  8. PLAVIX [Concomitant]
     Indication: ARTERIOSCLEROSIS CORONARY ARTERY
     Route: 048
     Dates: start: 20101206
  9. PLAVIX [Concomitant]
     Indication: ARTERIOSCLEROSIS CORONARY ARTERY
  10. CRESTOR [Concomitant]
     Indication: DYSLIPIDAEMIA
     Route: 048
     Dates: start: 20110502
  11. CRESTOR [Concomitant]
     Indication: DYSLIPIDAEMIA
  12. SENNOSIDE [Concomitant]
     Indication: CONSTIPATION
     Route: 048
     Dates: start: 20120426
  13. CALONAL [Concomitant]
     Indication: BACK PAIN
     Route: 048
     Dates: start: 20120619
  14. CALONAL [Concomitant]
     Indication: BACK PAIN
  15. DIFLUCAN [Concomitant]
     Indication: INFECTION PROPHYLAXIS
     Route: 048
     Dates: start: 20110426
  16. DIFLUCAN [Concomitant]
     Indication: INFECTION PROPHYLAXIS
  17. BAKTAR [Concomitant]
     Indication: INFECTION PROPHYLAXIS
     Route: 048
     Dates: start: 20110517
  18. BAKTAR [Concomitant]
     Indication: INFECTION PROPHYLAXIS
  19. BONALON [Concomitant]
     Indication: OSTEOPOROSIS PROPHYLAXIS
     Route: 048
     Dates: start: 20110806
  20. PREDNISOLONE TABLETS 5MG [Concomitant]
     Indication: IMMUNE THROMBOCYTOPENIC PURPURA
     Route: 048
     Dates: start: 20110426
  21. MYSLEE [Concomitant]
     Indication: INSOMNIA
     Route: 048
     Dates: start: 20120914
  22. FLOMOX [Concomitant]
     Indication: CYSTITIS NONINFECTIVE
     Route: 048
     Dates: start: 20120817
  23. FLOMOX [Concomitant]
     Indication: CYSTITIS NONINFECTIVE
  24. NESP [Concomitant]
     Indication: NEPHROGENIC ANAEMIA
     Route: 058
     Dates: start: 20120902
  25. NESP [Concomitant]
     Indication: NEPHROGENIC ANAEMIA
  26. MAGMITT [Concomitant]
     Indication: CONSTIPATION
     Route: 048
     Dates: start: 20101220, end: 20120425
  27. RHYTHMY [Concomitant]
     Route: 048
  28. RHYTHMY [Concomitant]
     Route: 048
  29. PREDNISOLONE [Concomitant]
     Indication: IMMUNE THROMBOCYTOPENIC PURPURA
     Route: 048
     Dates: start: 20110426

REACTIONS (10)
  - Convulsion [Recovered/Resolved]
  - Hyperreflexia [Recovered/Resolved]
  - Hypomagnesaemia [Recovered/Resolved]
  - Hypocalcaemia [Recovered/Resolved]
  - Trousseau^s sign [Recovered/Resolved]
  - Hypokalaemia [Recovered/Resolved]
  - Vomiting [Recovered/Resolved]
  - Chest discomfort [Recovered/Resolved]
  - Electrocardiogram ST segment depression [Recovered/Resolved]
  - Dizziness [Recovered/Resolved]
